FAERS Safety Report 14672145 (Version 6)
Quarter: 2018Q2

REPORT INFORMATION
  Report Type: Spontaneous
  Country: US (occurrence: US)
  Receive Date: 20180323
  Receipt Date: 20180606
  Transmission Date: 20180711
  Serious: Yes (Other)
  Sender: FDA-Public Use
  Company Number: PHEH2018US011256

PATIENT
  Sex: Female
  Weight: 54.43 kg

DRUGS (2)
  1. ZOFRAN ODT [Suspect]
     Active Substance: ONDANSETRON HYDROCHLORIDE
     Indication: VOMITING IN PREGNANCY
     Dosage: 1 DF, QD
     Route: 048
     Dates: start: 20070323, end: 20070815
  2. ZOFRAN [Suspect]
     Active Substance: ONDANSETRON HYDROCHLORIDE
     Indication: PRODUCT USED FOR UNKNOWN INDICATION
     Route: 048

REACTIONS (11)
  - Emotional distress [Unknown]
  - Injury [Unknown]
  - Product use in unapproved indication [Unknown]
  - Maternal exposure during pregnancy [Unknown]
  - Pre-eclampsia [Unknown]
  - Sinus tachycardia [Unknown]
  - Palpitations [Unknown]
  - Weight increased [Unknown]
  - Oedema peripheral [Unknown]
  - Dyspnoea [Unknown]
  - Anxiety [Unknown]
